FAERS Safety Report 9360177 (Version 1)
Quarter: 2013Q2

REPORT INFORMATION
  Report Type: Report from Study
  Country: US (occurrence: US)
  Receive Date: 20130621
  Receipt Date: 20130621
  Transmission Date: 20140414
  Serious: Yes (Other)
  Sender: FDA-Public Use
  Company Number: US-ROCHE-1165737

PATIENT
  Sex: Male

DRUGS (4)
  1. PEGASYS [Suspect]
     Indication: CHRONIC HEPATITIS C
     Route: 058
     Dates: start: 20121126, end: 20130603
  2. RIBASPHERE [Suspect]
     Indication: CHRONIC HEPATITIS C
     Dosage: DEVIDED DOSE
     Route: 065
     Dates: start: 20121126, end: 20130603
  3. VICTRELIS [Suspect]
     Indication: CHRONIC HEPATITIS C
     Route: 065
     Dates: end: 20130603
  4. ZOLPIDEM [Concomitant]

REACTIONS (13)
  - Chills [Unknown]
  - Chills [Unknown]
  - Body temperature increased [Unknown]
  - Back pain [Unknown]
  - Dyspnoea [Unknown]
  - Speech disorder [Unknown]
  - Cough [Unknown]
  - Nausea [Unknown]
  - Weight decreased [Unknown]
  - Insomnia [Unknown]
  - Dry skin [Unknown]
  - Erythema [Unknown]
  - Anaemia [Unknown]
